FAERS Safety Report 6538683-2 (Version None)
Quarter: 2010Q1

REPORT INFORMATION
  Report Type: 
  Country: None (occurrence: None)
  Receive Date: 20100115
  Receipt Date: 20100107
  Transmission Date: 20100710
  Serious: Yes (Hospitalization)
  Sender: FDA-Public Use
  Company Number: US-BIOGENIDEC-2010BI000928

PATIENT
  Age: 24 Year
  Sex: Female

DRUGS (1)
  1. AVONEX [Suspect]
     Indication: MULTIPLE SCLEROSIS
     Route: 030
     Dates: start: 20061201

REACTIONS (5)
  - BLINDNESS UNILATERAL [None]
  - FACIAL PALSY [None]
  - SELF INJURIOUS BEHAVIOUR [None]
  - TREMOR [None]
  - VISION BLURRED [None]
